FAERS Safety Report 9218205 (Version 1)
Quarter: 2013Q2

REPORT INFORMATION
  Report Type: Spontaneous
  Country: US (occurrence: US)
  Receive Date: 20130408
  Receipt Date: 20130408
  Transmission Date: 20140414
  Serious: Yes (Other)
  Sender: FDA-Public Use
  Company Number: CHPA2013US005427

PATIENT
  Age: 79 Year
  Sex: Male

DRUGS (5)
  1. THERAFLU FLU [Suspect]
     Indication: CHEST DISCOMFORT
     Dosage: UNK, 4 TO 6 HOURS
     Route: 048
  2. THERAFLU FLU [Suspect]
     Indication: NASOPHARYNGITIS
  3. THERAFLU FLU [Suspect]
     Indication: THROAT IRRITATION
  4. ADVAIR [Concomitant]
  5. VENTOLIN//SALBUTAMOL [Concomitant]

REACTIONS (5)
  - Hepatic steatosis [Unknown]
  - Off label use [Unknown]
  - Therapeutic response unexpected [Unknown]
  - Inappropriate schedule of drug administration [Unknown]
  - Wrong technique in drug usage process [Unknown]
